FAERS Safety Report 22030251 (Version 1)
Quarter: 2023Q1

REPORT INFORMATION
  Report Type: Spontaneous
  Country: US (occurrence: US)
  Receive Date: 20230223
  Receipt Date: 20230223
  Transmission Date: 20230418
  Serious: No
  Sender: FDA-Public Use
  Company Number: US-PRIMUS-2022-US-030237

PATIENT
  Age: 78 Year
  Sex: Male

DRUGS (1)
  1. SERNIVO [Suspect]
     Active Substance: BETAMETHASONE DIPROPIONATE
     Indication: Product used for unknown indication
     Dosage: APPLY ONCE DAILY TO SCALP
     Route: 061

REACTIONS (4)
  - Flushing [Unknown]
  - Drug ineffective [Unknown]
  - Feeling hot [Unknown]
  - Off label use [Unknown]
